FAERS Safety Report 5512158-1 (Version None)
Quarter: 2007Q4

REPORT INFORMATION
  Report Type: 
  Country: None (occurrence: None)
  Receive Date: 20071112
  Receipt Date: 20071102
  Transmission Date: 20080405
  Serious: Yes (Other)
  Sender: FDA-Public Use
  Company Number: MX-SHR-MX-2007-003260

PATIENT
  Sex: Female

DRUGS (3)
  1. ANGELIQ [Suspect]
     Indication: HORMONE REPLACEMENT THERAPY
     Dosage: 1 TAB(S), UNK
     Route: 048
     Dates: start: 20060930
  2. AMITRIPTYLINE HCL [Concomitant]
     Indication: DEPRESSION
     Dosage: UNK, UNK
     Route: 065
  3. CALTRATE 600+B [Concomitant]
     Dosage: UNK

REACTIONS (4)
  - DEPRESSION [None]
  - DRUG INTERACTION [None]
  - DYSAESTHESIA [None]
  - HEADACHE [None]
